FAERS Safety Report 19194936 (Version 1)
Quarter: 2021Q2

REPORT INFORMATION
  Report Type: Spontaneous
  Country: US (occurrence: US)
  Receive Date: 20210429
  Receipt Date: 20210429
  Transmission Date: 20210717
  Serious: Yes (Hospitalization, Other)
  Sender: FDA-Public Use
  Company Number: None

PATIENT
  Age: 51 Year
  Sex: Female

DRUGS (9)
  1. NITROFURANTN [Concomitant]
     Active Substance: NITROFURANTOIN
  2. HUMIRA [Suspect]
     Active Substance: ADALIMUMAB
     Indication: CROHN^S DISEASE
     Dosage: ?          OTHER FREQUENCY:EVERY 2 WEEKS;?
     Route: 058
     Dates: start: 20200807
  3. VIT. D [Concomitant]
     Active Substance: VITAMIN D NOS
  4. PROBIOTIC [Concomitant]
     Active Substance: PROBIOTICS NOS
  5. OXYCODONE [Concomitant]
     Active Substance: OXYCODONE
  6. SYNTHROID [Concomitant]
     Active Substance: LEVOTHYROXINE SODIUM
  7. VANCOMYCIN [Concomitant]
     Active Substance: VANCOMYCIN
  8. AMOX/K CLAV [Concomitant]
     Active Substance: AMOXICILLIN\CLAVULANATE POTASSIUM
  9. GABAPENTIN. [Concomitant]
     Active Substance: GABAPENTIN

REACTIONS (2)
  - Therapy interrupted [None]
  - Intestinal resection [None]

NARRATIVE: CASE EVENT DATE: 20210408
